FAERS Safety Report 9800276 (Version 2)
Quarter: 2014Q1

REPORT INFORMATION
  Report Type: Report from Study
  Country: IT (occurrence: IT)
  Receive Date: 20140106
  Receipt Date: 20140130
  Transmission Date: 20141002
  Serious: Yes (Hospitalization)
  Sender: FDA-Public Use
  Company Number: IT-GLAXOSMITHKLINE-B0955435A

PATIENT
  Age: 46 Year
  Sex: Female
  Weight: 70 kg

DRUGS (2)
  1. ELTROMBOPAG [Suspect]
     Indication: MYELODYSPLASTIC SYNDROME
     Dosage: 300MG PER DAY
  2. GABAPENTIN [Suspect]
     Indication: NEUROPATHY PERIPHERAL
     Route: 048
     Dates: start: 20130604, end: 20130616

REACTIONS (1)
  - Syncope [Recovered/Resolved]
